FAERS Safety Report 6272162-5 (Version None)
Quarter: 2009Q3

REPORT INFORMATION
  Report Type: 
  Country: None (occurrence: None)
  Receive Date: 20090717
  Receipt Date: 20090709
  Transmission Date: 20100115
  Serious: Yes (Life-Threatening)
  Sender: FDA-Public Use
  Company Number: AU-AVENTIS-200916802GDDC

PATIENT
  Sex: Male

DRUGS (1)
  1. ARAVA [Suspect]
     Dosage: DOSE: NOT INDICATED

REACTIONS (1)
  - SMALL INTESTINAL HAEMORRHAGE [None]
